FAERS Safety Report 9455934 (Version 2)
Quarter: 2013Q3

REPORT INFORMATION
  Report Type: Spontaneous
  Country: US (occurrence: US)
  Receive Date: 20130813
  Receipt Date: 20130920
  Transmission Date: 20140515
  Serious: Yes (Other)
  Sender: FDA-Public Use
  Company Number: US-PFIZER INC-2013233151

PATIENT
  Age: 68 Year
  Sex: Female
  Weight: 77.1 kg

DRUGS (4)
  1. CELEBREX [Suspect]
     Indication: OSTEOARTHRITIS
     Dosage: UNK, 1X/DAY
  2. CELEBREX [Suspect]
     Indication: CHONDROPATHY
  3. CELEBREX [Suspect]
     Indication: JOINT INJURY
  4. AVASTATIN [Concomitant]
     Indication: BLOOD CHOLESTEROL INCREASED
     Dosage: UNK

REACTIONS (2)
  - Arthropathy [Unknown]
  - Pain [Unknown]
